FAERS Safety Report 8478698-0 (Version None)
Quarter: 2012Q2

REPORT INFORMATION
  Report Type: 
  Country: None (occurrence: None)
  Receive Date: 20120629
  Receipt Date: 20120621
  Transmission Date: 20120825
  Serious: Yes (Other)
  Sender: FDA-Public Use
  Company Number: SE-JNJFOC-20120610871

PATIENT
  Age: 61 Year
  Sex: Female

DRUGS (15)
  1. SIMPONI [Suspect]
     Dosage: 4 TH INJECTION
     Route: 058
     Dates: start: 20120612
  2. SIMVASTATIN [Concomitant]
     Route: 065
  3. CALCIUM CARBONATE [Concomitant]
     Route: 065
  4. ESTRADIOL [Concomitant]
     Route: 065
     Dates: start: 20120601
  5. ACETAMINOPHEN [Concomitant]
     Route: 065
  6. CHOLECALCIFEROL [Concomitant]
     Route: 065
  7. CHLORZOXAZONE [Concomitant]
     Route: 065
  8. THERALEN [Concomitant]
     Route: 065
  9. PREDNISOLONE [Concomitant]
     Route: 065
  10. SIMPONI [Suspect]
     Indication: RHEUMATOID ARTHRITIS
     Dosage: FIRST INJECTION
     Route: 058
     Dates: start: 20120224
  11. OMEPRAZOLE [Concomitant]
     Route: 065
  12. TRAMADOL HCL [Concomitant]
     Route: 065
  13. CONTRACEPTIVE [Concomitant]
     Route: 065
     Dates: end: 20120601
  14. MOXONIDINE [Concomitant]
     Route: 065
  15. VALACYCLOVIR HYDROCHLORIDE [Concomitant]
     Route: 065

REACTIONS (7)
  - APHONIA [None]
  - EAR INFECTION [None]
  - DEEP VEIN THROMBOSIS [None]
  - SINUSITIS [None]
  - HERPES VIRUS INFECTION [None]
  - PNEUMONIA [None]
  - EYE DISORDER [None]
